FAERS Safety Report 7799785-6 (Version None)
Quarter: 2011Q4

REPORT INFORMATION
  Report Type: 
  Country: None (occurrence: None)
  Receive Date: 20111004
  Receipt Date: 20110831
  Transmission Date: 20120403
  Serious: Yes (Other)
  Sender: FDA-Public Use
  Company Number: CIO11015480

PATIENT
  Age: 73 Year
  Sex: Male

DRUGS (1)
  1. VICKS COUGH, VERSION/FLAVOR UNKNOWN (ASCORBIC ACID UNKNOWN UNK, CAMPHO [Suspect]
     Indication: SINUS DISORDER

REACTIONS (3)
  - WRONG TECHNIQUE IN DRUG USAGE PROCESS [None]
  - DENTAL CARIES [None]
  - TOOTH EROSION [None]
